FAERS Safety Report 15013807 (Version 1)
Quarter: 2018Q2

REPORT INFORMATION
  Report Type: Spontaneous
  Country: US (occurrence: US)
  Receive Date: 20180614
  Receipt Date: 20180614
  Transmission Date: 20180711
  Serious: No
  Sender: FDA-Public Use
  Company Number: US-VIFOR (INTERNATIONAL) INC.-VIT-2018-05333

PATIENT
  Age: 70 Year
  Sex: Female

DRUGS (7)
  1. IRON [Concomitant]
     Active Substance: IRON
  2. AMLODIPINE [Concomitant]
     Active Substance: AMLODIPINE BESYLATE
  3. LANTUS [Concomitant]
     Active Substance: INSULIN GLARGINE
  4. CALCIUM [Concomitant]
     Active Substance: CALCIUM
  5. VELTASSA [Suspect]
     Active Substance: PATIROMER
     Indication: RENAL DISORDER
     Route: 048
     Dates: start: 201805
  6. SIMVASTATIN. [Concomitant]
     Active Substance: SIMVASTATIN
     Indication: BLOOD CHOLESTEROL
  7. GLIPIZIDE. [Concomitant]
     Active Substance: GLIPIZIDE

REACTIONS (12)
  - Diarrhoea [Recovering/Resolving]
  - Feeling cold [Recovering/Resolving]
  - Decreased appetite [Recovering/Resolving]
  - Blood glucose decreased [Recovered/Resolved]
  - Abdominal pain upper [Recovering/Resolving]
  - Frequent bowel movements [Recovering/Resolving]
  - Nausea [Recovering/Resolving]
  - Somnolence [Recovering/Resolving]
  - Product use in unapproved indication [Unknown]
  - Chills [Recovering/Resolving]
  - Feeling abnormal [Unknown]
  - Malaise [Recovering/Resolving]

NARRATIVE: CASE EVENT DATE: 201805
